FAERS Safety Report 10612085 (Version 1)
Quarter: 2014Q4

REPORT INFORMATION
  Report Type: Spontaneous
  Country: US (occurrence: US)
  Receive Date: 20141127
  Receipt Date: 20141127
  Transmission Date: 20150529
  Serious: Yes (Other)
  Sender: FDA-Public Use
  Company Number: US-CIPLA LTD.-2014US02110

PATIENT

DRUGS (7)
  1. RAMUCIRUMAB [Suspect]
     Active Substance: RAMUCIRUMAB
     Indication: NON-SMALL CELL LUNG CANCER STAGE IV
     Dosage: INTRAVENOUSLY AT A DOSE OF 10 MG
  2. CARBOPLATIN. [Suspect]
     Active Substance: CARBOPLATIN
     Indication: NON-SMALL CELL LUNG CANCER STAGE IV
     Dosage: AUC 6 OVER 30 MINUTES ON DAY 1 OF EACH CYCLE 30 MIN AFTER PEMETREXED INFUSION
  3. PEMETREXED [Suspect]
     Active Substance: PEMETREXED
     Indication: NON-SMALL CELL LUNG CANCER STAGE IV
     Dosage: 500 MG/M2 INTRAVENOUSLY OVER 10 TO 15 MINUTES ON DAY 1 OF EACH CYCLE
  4. GEMCITABINE [Suspect]
     Active Substance: GEMCITABINE\GEMCITABINE HYDROCHLORIDE
     Indication: NON-SMALL CELL LUNG CANCER STAGE IV
     Dosage: INTRAVENOUSLY AT A DOSE OF 1000 MG/M2 OVER 30 MINUTES ON DAYS 1 AND 8 OF EVERY 21 DAY CYCLE
  5. FOLIC ACID. [Concomitant]
     Active Substance: FOLIC ACID
  6. CISPLATIN. [Suspect]
     Active Substance: CISPLATIN
     Indication: NON-SMALL CELL LUNG CANCER STAGE IV
     Dosage: 75 MG/M2 OVER 120 MINUTES ON DAY 1 OF EACH CYCLE
  7. VITAMIN B12 [Concomitant]
     Active Substance: CYANOCOBALAMIN

REACTIONS (1)
  - Ischaemic cerebral infarction [Unknown]
